FAERS Safety Report 12900850 (Version 1)
Quarter: 2016Q4

REPORT INFORMATION
  Report Type: Spontaneous
  Country: US (occurrence: US)
  Receive Date: 20161101
  Receipt Date: 20161101
  Transmission Date: 20170207
  Serious: No
  Sender: FDA-Public Use
  Company Number: US-DSJP-DSU-2016-111250

PATIENT
  Age: 62 Year
  Sex: Male
  Weight: 105.67 kg

DRUGS (6)
  1. WELCHOL [Suspect]
     Active Substance: COLESEVELAM HYDROCHLORIDE
     Indication: BLOOD CHOLESTEROL ABNORMAL
     Dosage: 3.75 G, EVERY 2 DAYS
     Dates: start: 201603, end: 20160321
  2. METFORMIN [Concomitant]
     Active Substance: METFORMIN HYDROCHLORIDE
     Indication: DIABETES MELLITUS
     Dosage: 1/2 TABLET, UNK
  3. BABY ASPIRIN [Concomitant]
     Active Substance: ASPIRIN
     Indication: PRODUCT USED FOR UNKNOWN INDICATION
     Dosage: 81 MG, QD
  4. ZIAC                               /00821801/ [Concomitant]
     Active Substance: CEFIXIME
     Indication: BLOOD PRESSURE ABNORMAL
     Dosage: 5 MG, QD
  5. WELCHOL [Suspect]
     Active Substance: COLESEVELAM HYDROCHLORIDE
     Indication: TYPE 2 DIABETES MELLITUS
     Dosage: 3.75 G, QD
     Dates: start: 201601, end: 201603
  6. FOLIC ACID. [Concomitant]
     Active Substance: FOLIC ACID
     Indication: PRODUCT USED FOR UNKNOWN INDICATION
     Dosage: 10 ?G, QD

REACTIONS (2)
  - Urticaria [Not Recovered/Not Resolved]
  - Incorrect dose administered [Recovered/Resolved]

NARRATIVE: CASE EVENT DATE: 201601
